FAERS Safety Report 15323196 (Version 5)
Quarter: 2018Q4

REPORT INFORMATION
  Report Type: Spontaneous
  Country: FR (occurrence: FR)
  Receive Date: 20180827
  Receipt Date: 20181025
  Transmission Date: 20190204
  Serious: Yes (Other)
  Sender: FDA-Public Use
  Company Number: FR-PFIZER INC-2018337741

PATIENT
  Age: 60 Year
  Sex: Female

DRUGS (7)
  1. TEMESTA [LORAZEPAM] [Concomitant]
     Dosage: UNK
  2. CELEBREX [Suspect]
     Active Substance: CELECOXIB
     Indication: RHEUMATIC DISORDER
  3. CELEBREX [Suspect]
     Active Substance: CELECOXIB
     Indication: PROPHYLAXIS
  4. CELEBREX [Suspect]
     Active Substance: CELECOXIB
     Indication: ARTHRALGIA
  5. CELEBREX [Suspect]
     Active Substance: CELECOXIB
     Indication: BACK PAIN
     Dosage: 400 MG, DAILY
     Dates: start: 20180816, end: 20180818
  6. CELEBREX [Suspect]
     Active Substance: CELECOXIB
     Indication: TENDONITIS
  7. CELEBREX [Suspect]
     Active Substance: CELECOXIB
     Indication: ARTHRITIS
     Dosage: BETWEEN 200 MG AND 400 MG, DAILY
     Dates: start: 201801, end: 20180815

REACTIONS (2)
  - Pemphigoid [Recovered/Resolved]
  - Dermatitis bullous [Recovered/Resolved]

NARRATIVE: CASE EVENT DATE: 201808
